FAERS Safety Report 5525052-7 (Version None)
Quarter: 2007Q4

REPORT INFORMATION
  Report Type: 
  Country: None (occurrence: None)
  Receive Date: 20071126
  Receipt Date: 20071115
  Transmission Date: 20080405
  Serious: Yes (Hospitalization, Other)
  Sender: FDA-Public Use
  Company Number: US-JNJFOC-20071103383

PATIENT
  Sex: Male
  Weight: 49.9 kg

DRUGS (4)
  1. ETRAVIRINE [Suspect]
     Indication: HIV INFECTION
     Route: 048
  2. PREZISTA [Suspect]
     Indication: HIV INFECTION
     Route: 048
  3. TRUVADA [Suspect]
     Indication: HIV INFECTION
     Route: 065
  4. ISENTRESS [Suspect]
     Indication: HIV INFECTION
     Route: 065

REACTIONS (1)
  - MYCOBACTERIUM AVIUM COMPLEX INFECTION [None]
